FAERS Safety Report 7264773-5 (Version None)
Quarter: 2011Q1

REPORT INFORMATION
  Report Type: 
  Country: None (occurrence: None)
  Receive Date: 20110131
  Receipt Date: 20110124
  Transmission Date: 20110831
  Serious: Yes (Other)
  Sender: FDA-Public Use
  Company Number: US-PFIZER INC-2011018490

PATIENT
  Age: 55 Year
  Sex: Male

DRUGS (6)
  1. SULFASALAZINE [Suspect]
     Dosage: 500 MG, 4X/DAY
  2. INSULIN GLARGINE [Concomitant]
  3. OMEPRAZOLE [Concomitant]
  4. LISINOPRIL [Concomitant]
  5. METRONIDAZOLE [Suspect]
     Dosage: 500 MG, 3X/DAY
  6. FLUOXETINE [Concomitant]

REACTIONS (1)
  - ENCEPHALOPATHY [None]
